FAERS Safety Report 24228230 (Version 1)
Quarter: 2024Q3

REPORT INFORMATION
  Report Type: Spontaneous
  Country: IN (occurrence: IN)
  Receive Date: 20240820
  Receipt Date: 20240820
  Transmission Date: 20241016
  Serious: Yes (Other)
  Sender: NOVARTIS
  Company Number: IN-SANDOZ-SDZ2023IN059672

PATIENT
  Sex: Male

DRUGS (2)
  1. TACROLIMUS [Suspect]
     Active Substance: TACROLIMUS
     Indication: Product used for unknown indication
     Dosage: 4 MG, QD, (2 MG, BID)
     Route: 048
  2. MYFORTIC [Suspect]
     Active Substance: MYCOPHENOLATE SODIUM
     Indication: Product used for unknown indication
     Dosage: UNK, BID
     Route: 048

REACTIONS (9)
  - Platelet count abnormal [Unknown]
  - Glycosylated haemoglobin increased [Unknown]
  - Breath sounds abnormal [Unknown]
  - Glomerular filtration rate abnormal [Unknown]
  - Haemoglobin abnormal [Unknown]
  - Blood cholesterol abnormal [Unknown]
  - Blood triglycerides abnormal [Unknown]
  - Low density lipoprotein abnormal [Unknown]
  - Glycosylated haemoglobin abnormal [Unknown]
